FAERS Safety Report 23946647 (Version 1)
Quarter: 2024Q2

REPORT INFORMATION
  Report Type: Spontaneous
  Country: US (occurrence: None)
  Receive Date: 20240606
  Receipt Date: 20240606
  Transmission Date: 20240716
  Serious: Yes (Disabling)
  Sender: FDA-Public Use
  Company Number: None

PATIENT
  Age: 60 Year
  Sex: Male
  Weight: 88.5 kg

DRUGS (1)
  1. ABECMA [Suspect]
     Active Substance: IDECABTAGENE VICLEUCEL
     Indication: Plasma cell myeloma
     Dosage: FREQUENCY : ONCE;?
     Route: 041
     Dates: start: 20240314

REACTIONS (6)
  - Peroneal nerve palsy [None]
  - Leukopenia [None]
  - Loss of proprioception [None]
  - Decreased vibratory sense [None]
  - Acute kidney injury [None]
  - Peroneal nerve palsy [None]

NARRATIVE: CASE EVENT DATE: 20240322
